FAERS Safety Report 23736573 (Version 1)
Quarter: 2024Q2

REPORT INFORMATION
  Report Type: Spontaneous
  Country: FR (occurrence: FR)
  Receive Date: 20240412
  Receipt Date: 20240412
  Transmission Date: 20240716
  Serious: Yes (Other)
  Sender: FDA-Public Use
  Company Number: None

PATIENT
  Age: 23 Year
  Sex: Male

DRUGS (5)
  1. ZOLPIDEM [Suspect]
     Active Substance: ZOLPIDEM TARTRATE
     Indication: Product used for unknown indication
     Dosage: UNK UNK, QD (3 TO 20 TABLETS / DAY)
     Route: 048
     Dates: start: 202301
  2. TRAMADOL [Suspect]
     Active Substance: TRAMADOL\TRAMADOL HYDROCHLORIDE
     Indication: Product used for unknown indication
     Dosage: 12 DOSAGE FORM, QD (12 TABS OF 50 MG IN THE EVENING)
     Route: 048
     Dates: start: 202011
  3. MORPHINE [Suspect]
     Active Substance: MORPHINE
     Indication: Product used for unknown indication
     Dosage: UNK UNK, QD (40 TO 50 MG IN THE EVENING)
     Route: 042
     Dates: start: 2018
  4. MORPHINE [Suspect]
     Active Substance: MORPHINE
     Dosage: UNK UNK, QD (40 TO 50 MG IN THE EVENING)
     Route: 030
     Dates: start: 2018
  5. KETAMINE [Suspect]
     Active Substance: KETAMINE
     Indication: Product used for unknown indication
     Dosage: 300 MILLIGRAM, 300MG 1 TO 3 TIMES/DAY
     Route: 030
     Dates: start: 202401

REACTIONS (2)
  - Drug use disorder [Not Recovered/Not Resolved]
  - Product use in unapproved indication [Not Recovered/Not Resolved]
